FAERS Safety Report 23535342 (Version 2)
Quarter: 2024Q2

REPORT INFORMATION
  Report Type: Spontaneous
  Country: US (occurrence: US)
  Receive Date: 20240218
  Receipt Date: 20240517
  Transmission Date: 20240716
  Serious: No
  Sender: FDA-Public Use
  Company Number: US-HORIZON THERAPEUTICS-HZN-2024-000424

PATIENT

DRUGS (2)
  1. TEPEZZA [Suspect]
     Active Substance: TEPROTUMUMAB-TRBW
     Indication: Endocrine ophthalmopathy
     Dosage: 10 MG/KG, EVERY 3 WEEKS, FIRST INFUSION
     Route: 042
     Dates: start: 2023
  2. TEPEZZA [Suspect]
     Active Substance: TEPROTUMUMAB-TRBW
     Dosage: 20 MG/KG, EVERY 3 WEEKS (SEVENTH INFUSION)
     Route: 042

REACTIONS (4)
  - Skin hyperpigmentation [Recovered/Resolved]
  - Vision blurred [Recovered/Resolved]
  - Eye discharge [Recovered/Resolved]
  - Muscle spasms [Not Recovered/Not Resolved]
